FAERS Safety Report 26084600 (Version 2)
Quarter: 2025Q4

REPORT INFORMATION
  Report Type: Spontaneous
  Country: JP (occurrence: JP)
  Receive Date: 20251124
  Receipt Date: 20251125
  Transmission Date: 20260117
  Serious: No
  Sender: BRISTOL-MYERS SQUIBB COMPANY
  Company Number: JP-BRISTOL-MYERS SQUIBB COMPANY-2025-156341

PATIENT
  Age: 82 Year
  Sex: Male

DRUGS (1)
  1. ORENCIA [Suspect]
     Active Substance: ABATACEPT
     Indication: Product used for unknown indication
     Dosage: ORENCIA FOR S.C. INJECTION 125 MG AUTOINJECTOR 1 ML 1 AUTOINJECTOR
     Route: 058

REACTIONS (3)
  - Device operational issue [Unknown]
  - Device safety feature issue [Unknown]
  - No adverse event [Unknown]

NARRATIVE: CASE EVENT DATE: 20251117
